FAERS Safety Report 4321854-3 (Version None)
Quarter: 2004Q1

REPORT INFORMATION
  Report Type: 
  Country: None (occurrence: None)
  Receive Date: 20040322
  Receipt Date: 20040322
  Transmission Date: 20041129
  Serious: No
  Sender: FDA-Public Use
  Company Number: None

PATIENT
  Age: 69 Year
  Sex: Male

DRUGS (1)
  1. ACARBOSE [Suspect]
     Indication: DIABETES MELLITUS
     Dosage: 50 MG PO BID
     Route: 048

REACTIONS (1)
  - NAUSEA [None]
